APPROVED DRUG PRODUCT: NEXIUM
Active Ingredient: ESOMEPRAZOLE MAGNESIUM
Strength: EQ 10MG BASE/PACKET
Dosage Form/Route: FOR SUSPENSION, DELAYED RELEASE;ORAL
Application: N022101 | Product #001 | TE Code: AB
Applicant: ASTRAZENECA PHARMACEUTICALS LP
Approved: Feb 27, 2008 | RLD: Yes | RS: No | Type: RX